FAERS Safety Report 16720074 (Version 1)
Quarter: 2019Q3

REPORT INFORMATION
  Report Type: Spontaneous
  Country: US (occurrence: US)
  Receive Date: 20190820
  Receipt Date: 20190820
  Transmission Date: 20191005
  Serious: No
  Sender: FDA-Public Use
  Company Number: US-PFIZER INC-2019355177

PATIENT
  Age: 61 Year
  Sex: Female

DRUGS (12)
  1. VITAMIN B12 [MECOBALAMIN] [Concomitant]
     Dosage: 2500 UG, UNK
  2. SEROQUEL [Concomitant]
     Active Substance: QUETIAPINE FUMARATE
     Dosage: 50 MG, UNK
  3. NORADRENALIN [NOREPINEPHRINE HYDROCHLORIDE] [Concomitant]
     Dosage: 10 MG, UNK
  4. ZOFRAN [Concomitant]
     Active Substance: ONDANSETRON HYDROCHLORIDE
     Dosage: 8 MG, UNK
  5. XANAX [Concomitant]
     Active Substance: ALPRAZOLAM
     Dosage: 0.25 MG, UNK
  6. XELJANZ XR [Suspect]
     Active Substance: TOFACITINIB CITRATE
     Indication: RHEUMATOID ARTHRITIS
     Dosage: 11 MG, DAILY
     Route: 048
     Dates: start: 20190808
  7. ULTRAM [Concomitant]
     Active Substance: TRAMADOL HYDROCHLORIDE
     Dosage: 50 MG, UNK
  8. VIVELLE-DOT [Concomitant]
     Active Substance: ESTRADIOL
     Dosage: UNK (0.1MG/24HR PATCH)
  9. DURAGESIC [Concomitant]
     Active Substance: FENTANYL
     Dosage: UNK (50MCG/HR PATCH TD72)
  10. OSTEO-BI-FLEX [Concomitant]
     Dosage: UNK (1500MG-400 TABLET)
  11. HYDROMORPHONE HCL [Concomitant]
     Active Substance: HYDROMORPHONE HYDROCHLORIDE
     Dosage: 4 MG, UNK
  12. LASIX [Concomitant]
     Active Substance: FUROSEMIDE
     Dosage: 20 MG, UNK

REACTIONS (2)
  - Diarrhoea [Unknown]
  - Tooth infection [Unknown]
